FAERS Safety Report 8886245 (Version 1)
Quarter: 2012Q4

REPORT INFORMATION
  Report Type: 
  Country: DE (occurrence: DE)
  Receive Date: 20121105
  Receipt Date: 20121105
  Transmission Date: 20130627
  Serious: Yes (Death, Other)
  Sender: FDA-Public Use
  Company Number: DE-ASTELLAS-2012US010592

PATIENT
  Age: 29 Year
  Sex: Male

DRUGS (1)
  1. AMBISOME [Suspect]
     Indication: ANTIFUNGAL TREATMENT
     Dosage: 3 mg/kg, UID/QD
     Route: 042
     Dates: start: 201208

REACTIONS (2)
  - Drug ineffective [Unknown]
  - Fungaemia [Fatal]
